FAERS Safety Report 8480870-0 (Version None)
Quarter: 2012Q3

REPORT INFORMATION
  Report Type: 
  Country: None (occurrence: None)
  Receive Date: 20120702
  Receipt Date: 20120622
  Transmission Date: 20120928
  Serious: Yes (Hospitalization, Other)
  Sender: FDA-Public Use
  Company Number: US-BAYER-2011-079453

PATIENT
  Age: 24 Year
  Sex: Female

DRUGS (14)
  1. PROMETHAZINE HYDROCHLORIDE [Concomitant]
     Dosage: 25 MG,AS NEEDEDUNK
  2. METOCLOPRAMIDE HYDROCHLORIDE [Concomitant]
     Dosage: 10 MG, 1 TABLET 4 TIMES DAILYUNK
  3. LEVOXYL [Concomitant]
     Dosage: 112MCG 1 TAB DAILY
  4. SUCRALFATE [Concomitant]
     Dosage: 1 GM 1 TABLET  DAILY
  5. TRIMETHOBENZAMIDE HYDROCHLORIDE [Concomitant]
     Indication: NAUSEA
     Dosage: 300 MG, 1 CAPSULE EVERY 6-8HOURS PRNUNK
  6. PAXIL [Concomitant]
  7. YASMIN [Suspect]
     Dosage: UNK
     Dates: start: 20010501, end: 20110501
  8. PROTONIX DELAYED RELEASE [Concomitant]
     Dosage: 40 MG, 1 TAB DAILY
     Dates: start: 20061116
  9. DROSPIRENONE AND ETHINYL ESTRADIOL [Suspect]
     Dosage: UNK
     Dates: start: 19990101, end: 20100101
  10. YASMIN [Suspect]
     Dosage: UNK
     Dates: start: 19990101, end: 20100101
  11. ADVAIR DISKUS 100/50 [Concomitant]
     Dosage: 250-50MCG/DOSE
     Route: 045
  12. HYDROCODONE BITARTRATE + ACETAMINOPHEN [Concomitant]
     Indication: PAIN
     Dosage: 5-500MG 1-2 TABLETS EVERY 4-6 [HOURS] AS NEEDED
     Dates: start: 20070604, end: 20070607
  13. VISTERIL [Concomitant]
     Indication: NAUSEA
     Dosage: 25 MG, UNK
  14. ACETEMYACIN [Concomitant]
     Dosage: 500 MG, UNK

REACTIONS (3)
  - GALLBLADDER DISORDER [None]
  - CHOLECYSTITIS CHRONIC [None]
  - CHOLECYSTECTOMY [None]
